FAERS Safety Report 7357368-6 (Version None)
Quarter: 2011Q1

REPORT INFORMATION
  Report Type: 
  Country: None (occurrence: None)
  Receive Date: 20110307
  Receipt Date: 20110222
  Transmission Date: 20110831
  Serious: Yes (Hospitalization)
  Sender: FDA-Public Use
  Company Number: PL-1185106

PATIENT
  Sex: Female
  Weight: 70 kg

DRUGS (4)
  1. PRINIVIL (PRINIVIL) [Concomitant]
  2. BISOCARD (BISOCARD) [Concomitant]
  3. KALDYUM (KALDYUM) [Concomitant]
  4. BETOPTIC [Suspect]
     Indication: GLAUCOMA
     Dosage: 1 GTT BID OPHTHALMIC
     Route: 047
     Dates: start: 20101209

REACTIONS (1)
  - BRADYCARDIA [None]
